FAERS Safety Report 6400193-0 (Version None)
Quarter: 2009Q4

REPORT INFORMATION
  Report Type: 
  Country: None (occurrence: None)
  Receive Date: 20091007
  Receipt Date: 20091007
  Transmission Date: 20100525
  Serious: Yes (Hospitalization)
  Sender: FDA-Public Use
  Company Number: None

PATIENT
  Age: 43 Year
  Sex: Female
  Weight: 91 kg

DRUGS (10)
  1. DOCETAXEL [Suspect]
     Indication: BREAST CANCER
     Dosage: 150MG ONCE IV
     Route: 042
     Dates: start: 20090430
  2. CYCLOPHOSPHAMIDE [Suspect]
     Indication: BREAST CANCER
     Dosage: 1000MG ONCE IV
     Route: 042
     Dates: start: 20090430
  3. MG HYDROXIDE [Concomitant]
  4. LEVOFLOXACIN [Concomitant]
  5. METOCLOPRAMIDE [Concomitant]
  6. ETANERCEPT [Concomitant]
  7. OXYCODONE HCL AND ACETAMINOPHEN [Concomitant]
  8. FOLIC ACID [Concomitant]
  9. PROMETHAZINE [Concomitant]
  10. METHOTREXATE [Concomitant]

REACTIONS (1)
  - FEBRILE NEUTROPENIA [None]
